FAERS Safety Report 6083634-0 (Version None)
Quarter: 2009Q1

REPORT INFORMATION
  Report Type: 
  Country: None (occurrence: None)
  Receive Date: 20090204
  Receipt Date: 20071115
  Transmission Date: 20090719
  Serious: Yes (Life-Threatening)
  Sender: FDA-Public Use
  Company Number: 263524

PATIENT
  Age: 86 Year
  Sex: Female
  Weight: 180 kg

DRUGS (5)
  1. NOVOLOG [Suspect]
     Indication: INSULIN-REQUIRING TYPE 2 DIABETES MELLITUS
     Dosage: SLIDING SCALE BEFORE MEALS, SUBCUTANEOUS
     Route: 058
     Dates: start: 20050601
  2. LISINOPRIL [Concomitant]
  3. LEVOTHROID [Concomitant]
  4. NORVASC /00972401/ (AMLODIPINE) [Concomitant]
  5. LANTUS [Concomitant]

REACTIONS (1)
  - HYPOGLYCAEMIC UNCONSCIOUSNESS [None]
